FAERS Safety Report 8630422 (Version 3)
Quarter: 2014Q2

REPORT INFORMATION
  Report Type: Spontaneous
  Country: US (occurrence: US)
  Receive Date: 20120622
  Receipt Date: 20140404
  Transmission Date: 20141212
  Serious: Yes (Disabling)
  Sender: FDA-Public Use
  Company Number: US-ASTRAZENECA-2012SE36397

PATIENT
  Age: 60 Year
  Sex: Male

DRUGS (26)
  1. NEXIUM [Suspect]
     Indication: DYSPEPSIA
     Dosage: ONCE A DAY
     Route: 048
     Dates: start: 2007, end: 2012
  2. NEXIUM [Suspect]
     Indication: DYSPEPSIA
     Route: 048
     Dates: start: 20071023
  3. TAGAMET [Concomitant]
     Dosage: TRIED ONCE
  4. ZANTAC [Concomitant]
  5. PEPTO BISMOL [Concomitant]
  6. ALKA SELTZER [Concomitant]
  7. TUMS [Concomitant]
  8. ROLAIDS [Concomitant]
  9. MYLANTA [Concomitant]
  10. PROGRAF [Concomitant]
  11. PROGRAF [Concomitant]
     Route: 048
     Dates: start: 20071126
  12. ALLOPURINOL [Concomitant]
     Indication: GOUT
  13. LABETALOL [Concomitant]
     Indication: BLOOD PRESSURE ABNORMAL
  14. LABETALOL [Concomitant]
     Indication: BLOOD PRESSURE ABNORMAL
     Route: 048
     Dates: start: 20071126
  15. MAGNESIUM [Concomitant]
  16. COMPLETE MULTIVITAMIN [Concomitant]
  17. COMPLETE MULTIVITAMIN [Concomitant]
     Dosage: DAILY
     Route: 048
     Dates: start: 20070116
  18. BABY ASPIRIN [Concomitant]
  19. CALCIUM [Concomitant]
     Dosage: THREE TIMES A DAY
  20. EPIVIR [Concomitant]
     Route: 048
     Dates: start: 20080123
  21. NORVASC [Concomitant]
  22. TRILIPIX [Concomitant]
  23. FISH OIL [Concomitant]
     Dates: start: 20100811
  24. PLAVIX [Concomitant]
     Route: 048
     Dates: start: 20100712
  25. SODIUM BICARBONATE [Concomitant]
     Route: 048
     Dates: start: 20100414
  26. COPEGUS [Concomitant]
     Route: 048
     Dates: start: 20090806

REACTIONS (5)
  - Hepatitis C [Unknown]
  - Upper limb fracture [Unknown]
  - Osteoporosis [Unknown]
  - Gout [Unknown]
  - Osteopenia [Unknown]
